FAERS Safety Report 17511088 (Version 2)
Quarter: 2020Q3

REPORT INFORMATION
  Report Type: Spontaneous
  Country: US (occurrence: US)
  Receive Date: 20200306
  Receipt Date: 20200702
  Transmission Date: 20201102
  Serious: Yes (Other)
  Sender: FDA-Public Use
  Company Number: US-009507513-2003USA001001

PATIENT
  Sex: Female

DRUGS (2)
  1. VANCOMYCIN [Suspect]
     Active Substance: VANCOMYCIN
     Indication: CLOSTRIDIUM DIFFICILE INFECTION
     Dosage: UNK
     Dates: start: 202001, end: 202001
  2. ZINPLAVA [Suspect]
     Active Substance: BEZLOTOXUMAB
     Indication: CLOSTRIDIUM DIFFICILE INFECTION
     Dosage: 10 MILLIGRAM/KILOGRAM, UNK
     Route: 042
     Dates: start: 202001, end: 202001

REACTIONS (1)
  - Clostridium difficile infection [Unknown]

NARRATIVE: CASE EVENT DATE: 202002
